FAERS Safety Report 5025115-9 (Version None)
Quarter: 2006Q2

REPORT INFORMATION
  Report Type: 
  Country: None (occurrence: None)
  Receive Date: 20060607
  Receipt Date: 20060522
  Transmission Date: 20061013
  Serious: Yes (Death)
  Sender: FDA-Public Use
  Company Number: DSA_70910_2006

PATIENT
  Age: 45 Year
  Sex: Female

DRUGS (2)
  1. METHADONE HCL [Suspect]
     Dosage: DF
  2. SERTRALINE [Suspect]
     Dosage: DF

REACTIONS (6)
  - DIABETIC COMPLICATION [None]
  - DIABETIC KETOACIDOSIS [None]
  - DRUG TOXICITY [None]
  - HEPATIC STEATOSIS [None]
  - NEPHROPATHY [None]
  - OVERDOSE [None]
